FAERS Safety Report 19902008 (Version 1)
Quarter: 2021Q3

REPORT INFORMATION
  Report Type: Spontaneous
  Country: US (occurrence: US)
  Receive Date: 20210930
  Receipt Date: 20210930
  Transmission Date: 20211014
  Serious: No
  Sender: FDA-Public Use
  Company Number: US-LUPIN PHARMACEUTICALS INC.-2021-18088

PATIENT
  Age: 12 Year
  Sex: Male

DRUGS (2)
  1. TIAGABINE [Suspect]
     Active Substance: TIAGABINE
     Indication: PAIN IN EXTREMITY
     Dosage: UNK
     Route: 065
     Dates: start: 2011
  2. GABAPENTIN. [Suspect]
     Active Substance: GABAPENTIN
     Indication: PAIN IN EXTREMITY
     Dosage: UNK
     Route: 065
     Dates: start: 2011

REACTIONS (2)
  - Sedation [Unknown]
  - Abnormal behaviour [Unknown]
